FAERS Safety Report 20300205 (Version 2)
Quarter: 2024Q3

REPORT INFORMATION
  Report Type: Spontaneous
  Country: US (occurrence: US)
  Receive Date: 20220105
  Receipt Date: 20240718
  Transmission Date: 20241016
  Serious: Yes (Hospitalization, Other)
  Sender: PFIZER
  Company Number: US-PFIZER INC-202101852704

PATIENT
  Age: 39 Year
  Sex: Female

DRUGS (2)
  1. XELJANZ XR [Suspect]
     Active Substance: TOFACITINIB CITRATE
     Dosage: 11 MG, DAILY
     Route: 048
     Dates: start: 2016
  2. XELJANZ XR [Suspect]
     Active Substance: TOFACITINIB CITRATE
     Dosage: 11 MG, DAILY(TAKE 11MG TABLET ORAL DAILY)
     Route: 048
     Dates: start: 20220827

REACTIONS (3)
  - Hiatus hernia [Recovered/Resolved]
  - Condition aggravated [Unknown]
  - Post procedural complication [Unknown]
